FAERS Safety Report 8273144-4 (Version None)
Quarter: 2012Q2

REPORT INFORMATION
  Report Type: 
  Country: None (occurrence: None)
  Receive Date: 20120411
  Receipt Date: 20120406
  Transmission Date: 20120825
  Serious: Yes (Other)
  Sender: FDA-Public Use
  Company Number: US-PFIZER INC-2012087500

PATIENT
  Sex: Female
  Weight: 72.562 kg

DRUGS (3)
  1. EFFEXOR XR [Suspect]
     Indication: DEPRESSION
     Dosage: TWO CAPSULES OF 150 MG, 1X/DAY
     Route: 048
  2. SYNTHROID [Concomitant]
     Dosage: UNK
  3. ADDERALL 5 [Concomitant]
     Dosage: UNK

REACTIONS (1)
  - FOOT FRACTURE [None]
